FAERS Safety Report 8366044-2 (Version None)
Quarter: 2012Q2

REPORT INFORMATION
  Report Type: 
  Country: None (occurrence: None)
  Receive Date: 20120517
  Receipt Date: 20120510
  Transmission Date: 20120825
  Serious: Yes (Death)
  Sender: FDA-Public Use
  Company Number: DE-UCBSA-055847

PATIENT
  Age: 32 Year
  Sex: Female

DRUGS (3)
  1. ANTIEPILEPTICS [Concomitant]
  2. VIMPAT [Suspect]
     Indication: GRAND MAL CONVULSION
     Route: 048
     Dates: start: 20111025, end: 20120412
  3. LAMOTRIGINE [Suspect]
     Indication: GRAND MAL CONVULSION
     Route: 048
     Dates: start: 20110501, end: 20120412

REACTIONS (2)
  - DEATH [None]
  - CONVULSION [None]
